FAERS Safety Report 9981144 (Version 1)
Quarter: 2014Q1

REPORT INFORMATION
  Report Type: Spontaneous
  Country: US (occurrence: None)
  Receive Date: 20140306
  Receipt Date: 20140306
  Transmission Date: 20141002
  Serious: No
  Sender: FDA-Public Use
  Company Number: None

PATIENT
  Age: 61 Year
  Sex: Female
  Weight: 79.38 kg

DRUGS (9)
  1. GLUMETZA SR [Suspect]
     Indication: HYPOGLYCAEMIA
     Dosage: 1 PILL BID BY MOUTH
     Route: 048
     Dates: start: 201210
  2. EXFORGE [Concomitant]
  3. CARVEDILOL [Concomitant]
  4. NEXIUM [Concomitant]
  5. CRESTOR [Concomitant]
  6. PRODIAPN [Concomitant]
  7. GNC ULTRA-MEGA WOMEN^S VITAMINS [Concomitant]
  8. VITAMIN B 12 [Concomitant]
  9. VITAMIN D3 [Concomitant]

REACTIONS (4)
  - Medication residue present [None]
  - Product quality issue [None]
  - Product solubility abnormal [None]
  - No therapeutic response [None]
